FAERS Safety Report 23142587 (Version 1)
Quarter: 2023Q4

REPORT INFORMATION
  Report Type: Spontaneous
  Country: US (occurrence: US)
  Receive Date: 20231103
  Receipt Date: 20231103
  Transmission Date: 20240110
  Serious: Yes (Hospitalization)
  Sender: FDA-Public Use
  Company Number: US-ELI_LILLY_AND_COMPANY-US202310013826

PATIENT
  Age: 49 Year
  Sex: Male

DRUGS (2)
  1. TALTZ [Suspect]
     Active Substance: IXEKIZUMAB
     Indication: Erythrodermic psoriasis
     Dosage: 80 MG, UNKNOWN
     Route: 065
  2. COSENTYX [Suspect]
     Active Substance: SECUKINUMAB
     Indication: Erythrodermic psoriasis
     Dosage: 300 MG, UNKNOWN
     Route: 065

REACTIONS (5)
  - Hypertension [Recovering/Resolving]
  - Erythrodermic psoriasis [Recovered/Resolved]
  - Arthralgia [Unknown]
  - Off label use [Unknown]
  - Diffuse alopecia [Unknown]

NARRATIVE: CASE EVENT DATE: 20230606
